FAERS Safety Report 21340173 (Version 1)
Quarter: 2022Q3

REPORT INFORMATION
  Report Type: Spontaneous
  Country: US (occurrence: US)
  Receive Date: 20220916
  Receipt Date: 20220916
  Transmission Date: 20221027
  Serious: No
  Sender: FDA-Public Use
  Company Number: US-SA-SAC20220914001396

PATIENT
  Sex: Female
  Weight: 59.41 kg

DRUGS (2)
  1. DUPIXENT [Suspect]
     Active Substance: DUPILUMAB
     Indication: Dermatitis atopic
     Dosage: 300 MG, QOW
     Route: 058
     Dates: start: 20220608
  2. PREDNISONE [Concomitant]
     Active Substance: PREDNISONE
     Dates: end: 20220907

REACTIONS (3)
  - Dry skin [Unknown]
  - Skin fissures [Unknown]
  - Arthralgia [Unknown]
